FAERS Safety Report 11945853 (Version 1)
Quarter: 2016Q1

REPORT INFORMATION
  Report Type: Spontaneous
  Country: US (occurrence: US)
  Receive Date: 20160125
  Receipt Date: 20160125
  Transmission Date: 20160526
  Serious: No
  Sender: FDA-Public Use
  Company Number: US-ABBVIE-08P-163-0454615-00

PATIENT
  Age: 63 Year
  Sex: Male
  Weight: 76.95 kg

DRUGS (19)
  1. HUMIRA [Suspect]
     Active Substance: ADALIMUMAB
     Indication: CROHN^S DISEASE
     Route: 058
     Dates: start: 200802
  2. IMURAN [Concomitant]
     Active Substance: AZATHIOPRINE
     Indication: CROHN^S DISEASE
     Route: 048
     Dates: start: 2005, end: 200803
  3. INSULIN [Concomitant]
     Active Substance: INSULIN NOS
     Indication: PRODUCT USED FOR UNKNOWN INDICATION
     Dosage: VARIABLE RATES IN A PUMP
     Route: 058
  4. VITAMIN E [Concomitant]
     Active Substance: .ALPHA.-TOCOPHEROL
     Indication: PRODUCT USED FOR UNKNOWN INDICATION
     Route: 048
  5. ZINC [Concomitant]
     Active Substance: ZINC\ZINC CHLORIDE
     Indication: PRODUCT USED FOR UNKNOWN INDICATION
     Route: 048
  6. ZYMAR [Concomitant]
     Active Substance: GATIFLOXACIN
     Indication: CATARACT
     Route: 047
     Dates: start: 20080527
  7. IMURAN [Concomitant]
     Active Substance: AZATHIOPRINE
     Route: 048
     Dates: start: 200805
  8. ASA [Concomitant]
     Active Substance: ASPIRIN
     Indication: PRODUCT USED FOR UNKNOWN INDICATION
     Route: 048
  9. XALATAN [Concomitant]
     Active Substance: LATANOPROST
     Indication: CATARACT
     Route: 047
     Dates: start: 20080527
  10. BONIVA [Concomitant]
     Active Substance: IBANDRONATE SODIUM
     Indication: OSTEOPOROSIS
     Route: 048
  11. OSCAL [Concomitant]
     Active Substance: CALCIUM CARBONATE
     Indication: OSTEOPOROSIS
     Dosage: 500 DAILY
     Route: 048
  12. MAGNESIUM [Concomitant]
     Active Substance: MAGNESIUM
     Indication: MINERAL SUPPLEMENTATION
     Route: 065
  13. HUMIRA [Suspect]
     Active Substance: ADALIMUMAB
     Route: 058
     Dates: start: 2010
  14. HYZAAR [Concomitant]
     Active Substance: HYDROCHLOROTHIAZIDE\LOSARTAN POTASSIUM
     Indication: HYPERTENSION
     Dosage: 50 / 12.5 MG DAILY
     Route: 048
  15. VITAMIN C [Concomitant]
     Active Substance: ASCORBIC ACID
     Indication: PRODUCT USED FOR UNKNOWN INDICATION
     Route: 048
  16. FOLIC ACID. [Concomitant]
     Active Substance: FOLIC ACID
     Indication: PRODUCT USED FOR UNKNOWN INDICATION
     Route: 048
  17. PRILOSEC [Concomitant]
     Active Substance: OMEPRAZOLE MAGNESIUM
     Indication: PRODUCT USED FOR UNKNOWN INDICATION
     Route: 048
  18. ASACOL [Concomitant]
     Active Substance: MESALAMINE
     Indication: PRODUCT USED FOR UNKNOWN INDICATION
     Route: 048
  19. PRED [Concomitant]
     Active Substance: PREDNISONE
     Indication: CATARACT
     Route: 047
     Dates: start: 20080527

REACTIONS (13)
  - Arthralgia [Not Recovered/Not Resolved]
  - Oral mucosal exfoliation [Not Recovered/Not Resolved]
  - Stomatitis [Not Recovered/Not Resolved]
  - Lip pain [Unknown]
  - Chapped lips [Not Recovered/Not Resolved]
  - Aptyalism [Not Recovered/Not Resolved]
  - Foot deformity [Not Recovered/Not Resolved]
  - Lip dry [Not Recovered/Not Resolved]
  - Muscle spasms [Not Recovered/Not Resolved]
  - Lichen planus [Not Recovered/Not Resolved]
  - Oral herpes [Not Recovered/Not Resolved]
  - Candida infection [Unknown]
  - Hypophagia [Unknown]

NARRATIVE: CASE EVENT DATE: 200804
